FAERS Safety Report 6556779-6 (Version None)
Quarter: 2010Q1

REPORT INFORMATION
  Report Type: 
  Country: None (occurrence: None)
  Receive Date: 20100125
  Receipt Date: 20100114
  Transmission Date: 20100710
  Serious: Yes (Hospitalization)
  Sender: FDA-Public Use
  Company Number: 2010SP000155

PATIENT
  Age: 17 Year
  Sex: Male
  Weight: 118.8424 kg

DRUGS (2)
  1. CICLESONIDE HFA [Suspect]
     Indication: RHINITIS PERENNIAL
     Dosage: 80 UG;
     Dates: start: 20091012, end: 20100114
  2. CICLESONIDE HFA [Suspect]
     Indication: RHINITIS PERENNIAL
     Dosage: 80 UG;
     Dates: start: 20100116

REACTIONS (1)
  - APPENDICITIS [None]
